FAERS Safety Report 21274243 (Version 12)
Quarter: 2024Q3

REPORT INFORMATION
  Report Type: Report from Study
  Country: CN (occurrence: CN)
  Receive Date: 20220831
  Receipt Date: 20240709
  Transmission Date: 20241017
  Serious: Yes (Hospitalization)
  Sender: ROCHE
  Company Number: CN-ROCHE-3167690

PATIENT
  Age: 68 Year
  Sex: Male
  Weight: 79.0 kg

DRUGS (26)
  1. ALECTINIB [Suspect]
     Active Substance: ALECTINIB
     Indication: Non-small cell lung cancer metastatic
     Dosage: DATE OF MOST RECENT DOSE PRIOR TO ONSET OF ADVERSE EVENT: 28/JUL/2022 600 MG
     Route: 048
     Dates: start: 20211028
  2. ZOLEDRONIC ACID [Concomitant]
     Active Substance: ZOLEDRONIC ACID
     Dosage: SUBSEQUENT DOSE ON 16/MAY/2023, 20/JUN/2023
     Route: 042
     Dates: start: 20220705, end: 20220705
  3. ZOLEDRONIC ACID [Concomitant]
     Active Substance: ZOLEDRONIC ACID
     Route: 042
     Dates: start: 20230516, end: 20230516
  4. ZOLEDRONIC ACID [Concomitant]
     Active Substance: ZOLEDRONIC ACID
     Route: 042
     Dates: start: 20230620, end: 20230620
  5. RIVAROXABAN [Concomitant]
     Active Substance: RIVAROXABAN
     Indication: Venous thrombosis
     Dosage: THROMBOSIS PREVENTION
     Route: 048
     Dates: start: 20220705, end: 20220718
  6. RIVAROXABAN [Concomitant]
     Active Substance: RIVAROXABAN
     Route: 048
     Dates: start: 202208
  7. OXYCODONE HYDROCHLORIDE [Concomitant]
     Active Substance: OXYCODONE HYDROCHLORIDE
     Indication: Analgesic therapy
     Dosage: PREVENT PAIN
     Route: 048
     Dates: start: 20220705, end: 20220711
  8. OXYCODONE HYDROCHLORIDE [Concomitant]
     Active Substance: OXYCODONE HYDROCHLORIDE
     Route: 048
     Dates: start: 20220825, end: 20220831
  9. OMEPRAZOLE [Concomitant]
     Active Substance: OMEPRAZOLE
     Route: 050
     Dates: start: 20220728, end: 20220728
  10. GLUTATHIONE [Concomitant]
     Active Substance: GLUTATHIONE
     Route: 050
     Dates: start: 20220728, end: 20220728
  11. HERBALS [Concomitant]
     Active Substance: HERBALS
     Route: 050
     Dates: start: 20220728, end: 20220728
  12. ASPIRIN DL-LYSINE [Concomitant]
     Active Substance: ASPIRIN DL-LYSINE
     Indication: Analgesic therapy
     Route: 050
     Dates: start: 20220728, end: 20220728
  13. CANDESARTAN [Concomitant]
     Active Substance: CANDESARTAN
     Indication: Hypertension
     Route: 048
     Dates: end: 20230724
  14. CONFORMAL [Concomitant]
     Indication: Prostatitis
     Dates: start: 2017
  15. ASPIRIN [Concomitant]
     Active Substance: ASPIRIN
  16. ISOSORBIDE DINITRATE [Concomitant]
     Active Substance: ISOSORBIDE DINITRATE
  17. OXYCODONE HYDROCHLORIDE [Concomitant]
     Active Substance: OXYCODONE HYDROCHLORIDE
     Indication: Analgesic therapy
     Route: 048
     Dates: start: 20230516, end: 20230522
  18. OXYCODONE HYDROCHLORIDE [Concomitant]
     Active Substance: OXYCODONE HYDROCHLORIDE
     Route: 048
     Dates: start: 20220825, end: 20220831
  19. IBUPROFEN [Concomitant]
     Active Substance: IBUPROFEN
     Indication: Pyrexia
     Route: 048
     Dates: start: 20230722, end: 20230722
  20. LACTULOSE [Concomitant]
     Active Substance: LACTULOSE
     Route: 048
     Dates: start: 20220826, end: 20220901
  21. COMPOUND PARACETAMOL AND AMANTADINE HYDROCHLORIDE [Concomitant]
     Indication: Pyrexia
     Route: 048
     Dates: start: 20230722, end: 20230723
  22. BICYCLOL [Concomitant]
     Active Substance: BICYCLOL
     Route: 048
     Dates: start: 202111
  23. PHOSPHOLIPID [Concomitant]
     Active Substance: PHOSPHOLIPID
     Route: 048
     Dates: start: 2022
  24. BRIGATINIB [Concomitant]
     Active Substance: BRIGATINIB
     Dates: start: 20220822, end: 20220822
  25. BRIGATINIB [Concomitant]
     Active Substance: BRIGATINIB
     Dates: start: 20220822, end: 20230120
  26. BIOTINIB [Concomitant]
     Dates: start: 20211128, end: 20220729

REACTIONS (2)
  - Albuminuria [Unknown]
  - Cholecystitis acute [Recovered/Resolved]

NARRATIVE: CASE EVENT DATE: 20220729
